FAERS Safety Report 5029147-6 (Version None)
Quarter: 2006Q2

REPORT INFORMATION
  Report Type: 
  Country: None (occurrence: None)
  Receive Date: 20060613
  Receipt Date: 20060602
  Transmission Date: 20061013
  Serious: Yes (Life-Threatening, Hospitalization)
  Sender: FDA-Public Use
  Company Number: GXKR2006BJ02850

PATIENT

DRUGS (3)
  1. PENICILLIN V [Suspect]
  2. ACETYLSALICYLIC ACID SRT [Concomitant]
  3. CHLOROQUINE PHOSPHATE [Concomitant]

REACTIONS (2)
  - PYREXIA [None]
  - TOXIC EPIDERMAL NECROLYSIS [None]
